FAERS Safety Report 7325271-3 (Version None)
Quarter: 2011Q1

REPORT INFORMATION
  Report Type: 
  Country: None (occurrence: None)
  Receive Date: 20110302
  Receipt Date: 20110225
  Transmission Date: 20110831
  Serious: No
  Sender: FDA-Public Use
  Company Number: US-PFIZER INC-2011042003

PATIENT
  Sex: Male
  Weight: 95.2 kg

DRUGS (8)
  1. CHANTIX [Interacting]
     Dosage: 0.5 MG, 1X/DAY
     Dates: start: 20110201
  2. RANITIDINE [Interacting]
     Indication: DYSPEPSIA
     Dosage: TWO TO THREE ORAL TABLETS OF 75MG ONCE A DAY
     Route: 048
     Dates: start: 20110201
  3. BUPROPION [Concomitant]
     Dosage: 300 MG, DAILY
  4. LYRICA [Concomitant]
     Dosage: 300 MG, 2X/DAY
     Route: 048
  5. OXYCODONE HCL AND ACETAMINOPHEN [Concomitant]
     Dosage: 10/325 MG, 2X/DAY
  6. CHANTIX [Suspect]
     Indication: SMOKING CESSATION THERAPY
     Dosage: 0.5 MG, 1X/DAY
     Route: 048
     Dates: start: 20070101, end: 20070101
  7. TRAMADOL [Concomitant]
     Indication: PAIN
     Dosage: 50 MG, 4X/DAY
  8. AMOXICILLIN [Concomitant]
     Dosage: 500 MG, UNK

REACTIONS (4)
  - DRUG INEFFECTIVE [None]
  - DYSPEPSIA [None]
  - PAIN [None]
  - DRUG INTERACTION [None]
